FAERS Safety Report 22539440 (Version 1)
Quarter: 2023Q2

REPORT INFORMATION
  Report Type: Report from Study
  Country: IT (occurrence: IT)
  Receive Date: 20230609
  Receipt Date: 20230609
  Transmission Date: 20230722
  Serious: Yes (Life-Threatening, Hospitalization)
  Sender: FDA-Public Use
  Company Number: None

PATIENT
  Age: 2 Year
  Sex: Male
  Weight: 14 kg

DRUGS (4)
  1. DOXORUBICIN [Suspect]
     Active Substance: DOXORUBICIN
     Indication: Product used for unknown indication
     Dosage: 18 MG  , DOXORUBICINA
     Dates: start: 20220810, end: 20220915
  2. METHOTREXATE [Suspect]
     Active Substance: METHOTREXATE
     Indication: Product used for unknown indication
     Dosage: METOTREXATO
     Dates: start: 20220217, end: 20220930
  3. VINCRISTINE [Suspect]
     Active Substance: VINCRISTINE
     Indication: Product used for unknown indication
     Dosage: VINCRISTINA
     Dates: start: 20220810, end: 20220915
  4. CYTARABINE [Suspect]
     Active Substance: CYTARABINE
     Indication: Acute lymphocytic leukaemia
     Dates: start: 20220217, end: 20221203

REACTIONS (2)
  - Febrile neutropenia [Recovered/Resolved with Sequelae]
  - Anaemia [Recovered/Resolved]

NARRATIVE: CASE EVENT DATE: 20220423
